FAERS Safety Report 22205698 (Version 1)
Quarter: 2023Q2

REPORT INFORMATION
  Report Type: Spontaneous
  Country: SG (occurrence: SG)
  Receive Date: 20230413
  Receipt Date: 20230413
  Transmission Date: 20230722
  Serious: Yes (Other)
  Sender: FDA-Public Use
  Company Number: SG-BAYER-2022A058949

PATIENT

DRUGS (1)
  1. XARELTO [Suspect]
     Active Substance: RIVAROXABAN
     Indication: Acute coronary syndrome
     Dosage: 2.5 MG
     Route: 048

REACTIONS (1)
  - Intracardiac thrombus [Unknown]
